FAERS Safety Report 7310106-5 (Version None)
Quarter: 2011Q1

REPORT INFORMATION
  Report Type: 
  Country: None (occurrence: None)
  Receive Date: 20110224
  Receipt Date: 20110215
  Transmission Date: 20110831
  Serious: No
  Sender: FDA-Public Use
  Company Number: US-PFIZER INC-2010157300

PATIENT
  Sex: Female
  Weight: 44 kg

DRUGS (3)
  1. ZOCOR [Concomitant]
     Dosage: UNK
  2. PREMARIN [Suspect]
     Indication: ATROPHIC VULVOVAGINITIS
     Dosage: 1 G, 2X/WEEK
     Route: 067
     Dates: start: 20090804, end: 20101115
  3. PRILOSEC [Concomitant]
     Dosage: UNK

REACTIONS (1)
  - VULVOVAGINAL BURNING SENSATION [None]
